FAERS Safety Report 12731154 (Version 1)
Quarter: 2016Q3

REPORT INFORMATION
  Report Type: Spontaneous
  Country: US (occurrence: US)
  Receive Date: 20160909
  Receipt Date: 20160909
  Transmission Date: 20161109
  Serious: Yes (Hospitalization, Disabling)
  Sender: FDA-Public Use
  Company Number: None

PATIENT
  Age: 57 Year
  Sex: Female
  Weight: 63 kg

DRUGS (7)
  1. LYRICA [Suspect]
     Active Substance: PREGABALIN
     Indication: FIBROMYALGIA
     Dates: start: 20080601, end: 20100601
  2. MAGNESIUM [Concomitant]
     Active Substance: MAGNESIUM
  3. BUTRANS [Concomitant]
     Active Substance: BUPRENORPHINE
  4. IBUPROFEN. [Concomitant]
     Active Substance: IBUPROFEN
  5. VITAMIN D3 [Concomitant]
     Active Substance: CHOLECALCIFEROL
  6. CALCIUM [Concomitant]
     Active Substance: CALCIUM
  7. NEURONTIN [Concomitant]
     Active Substance: GABAPENTIN

REACTIONS (6)
  - Brain injury [None]
  - Negative thoughts [None]
  - Impaired work ability [None]
  - Weight increased [None]
  - Memory impairment [None]
  - Suicidal ideation [None]

NARRATIVE: CASE EVENT DATE: 20090301
